FAERS Safety Report 9264155 (Version 2)
Quarter: 2013Q2

REPORT INFORMATION
  Report Type: Spontaneous
  Country: BR (occurrence: BR)
  Receive Date: 20130430
  Receipt Date: 20130513
  Transmission Date: 20140414
  Serious: Yes (Other)
  Sender: FDA-Public Use
  Company Number: BR-B.I. PHARMACEUTICALS,INC./RIDGEFIELD-2013-BR-00455BR

PATIENT
  Sex: Male

DRUGS (1)
  1. MICARDIS ANLO [Suspect]
     Indication: HYPERTENSION
     Dosage: TELMISARTAN 40 MG / AMLODIPINE 5 MG
     Route: 048
     Dates: start: 201204

REACTIONS (3)
  - Hypertensive crisis [Recovered/Resolved]
  - Headache [Recovered/Resolved]
  - Dizziness [Recovered/Resolved]
